FAERS Safety Report 4350553-7 (Version None)
Quarter: 2004Q2

REPORT INFORMATION
  Report Type: 
  Country: None (occurrence: None)
  Receive Date: 20040427
  Receipt Date: 20040414
  Transmission Date: 20050107
  Serious: Yes (Death, Hospitalization)
  Sender: FDA-Public Use
  Company Number: US-JNJFOC-20040203783

PATIENT
  Age: 70 Year
  Sex: Male
  Weight: 81.6475 kg

DRUGS (2)
  1. DOXIL [Suspect]
     Indication: PROSTATE CANCER
     Dosage: DOSE UNKNOWN, EVERY 21 DAYS X3 CYCLES
     Dates: start: 20030729, end: 20031125
  2. TAXOTERE [Suspect]
     Indication: PROSTATE CANCER
     Dates: start: 20030701

REACTIONS (33)
  - ATRIAL FIBRILLATION [None]
  - BACTERIAL INFECTION [None]
  - BLOOD GLUCOSE INCREASED [None]
  - BLOOD SODIUM DECREASED [None]
  - BLOOD UREA INCREASED [None]
  - CATHETER RELATED COMPLICATION [None]
  - CATHETER SITE HAEMORRHAGE [None]
  - COMA [None]
  - CONFUSIONAL STATE [None]
  - DIARRHOEA [None]
  - DRUG HYPERSENSITIVITY [None]
  - ECCHYMOSIS [None]
  - EPISTAXIS [None]
  - FAECAL OCCULT BLOOD POSITIVE [None]
  - GENERAL PHYSICAL HEALTH DETERIORATION [None]
  - GRANULOCYTE COUNT INCREASED [None]
  - HAEMOGLOBIN DECREASED [None]
  - HYPOTENSION [None]
  - HYPOXIA [None]
  - LOSS OF CONSCIOUSNESS [None]
  - LUNG INFILTRATION [None]
  - LYMPHOCYTE COUNT DECREASED [None]
  - MASS [None]
  - MENTAL STATUS CHANGES [None]
  - PERITONEAL HAEMORRHAGE [None]
  - PLATELET COUNT INCREASED [None]
  - PNEUMONIA [None]
  - PNEUMONITIS CHEMICAL [None]
  - PULMONARY OEDEMA [None]
  - RESPIRATORY FAILURE [None]
  - RETROPERITONEAL HAEMORRHAGE [None]
  - SPINAL CORD COMPRESSION [None]
  - URINARY TRACT INFECTION [None]
